FAERS Safety Report 24977861 (Version 1)
Quarter: 2025Q1

REPORT INFORMATION
  Report Type: Spontaneous
  Country: US (occurrence: US)
  Receive Date: 20250217
  Receipt Date: 20250217
  Transmission Date: 20250408
  Serious: No
  Sender: PFIZER
  Company Number: US-PFIZER INC-202500033826

PATIENT
  Age: 50 Year
  Sex: Female
  Weight: 117.93 kg

DRUGS (3)
  1. NURTEC ODT [Suspect]
     Active Substance: RIMEGEPANT SULFATE
     Indication: Migraine
     Route: 060
     Dates: start: 20250209
  2. NURTEC ODT [Suspect]
     Active Substance: RIMEGEPANT SULFATE
  3. LOSARTAN POTASSIUM [Concomitant]
     Active Substance: LOSARTAN POTASSIUM
     Indication: Hypertension
     Dosage: 50 MG, 1X/DAY
     Route: 048

REACTIONS (2)
  - Vomiting projectile [Recovered/Resolved]
  - Vertigo [Recovering/Resolving]

NARRATIVE: CASE EVENT DATE: 20250209
